FAERS Safety Report 8176089-3 (Version None)
Quarter: 2012Q1

REPORT INFORMATION
  Report Type: 
  Country: None (occurrence: None)
  Receive Date: 20120301
  Receipt Date: 20120223
  Transmission Date: 20120608
  Serious: Yes (Other)
  Sender: FDA-Public Use
  Company Number: JP-BRISTOL-MYERS SQUIBB COMPANY-16369001

PATIENT
  Age: 50 Year
  Sex: Male

DRUGS (2)
  1. ERBITUX [Suspect]
     Indication: RECTAL CANCER METASTATIC
     Route: 042
     Dates: start: 20100701
  2. IRINOTECAN HCL [Suspect]
     Indication: RECTAL CANCER METASTATIC
     Route: 042
     Dates: start: 20100701

REACTIONS (2)
  - DISSEMINATED INTRAVASCULAR COAGULATION [None]
  - FATIGUE [None]
